FAERS Safety Report 24631460 (Version 1)
Quarter: 2024Q4

REPORT INFORMATION
  Report Type: Spontaneous
  Country: US (occurrence: None)
  Receive Date: 20241118
  Receipt Date: 20241118
  Transmission Date: 20250115
  Serious: Yes (Other)
  Sender: Public
  Company Number: None

PATIENT
  Sex: Female

DRUGS (4)
  1. NUCALA [Suspect]
     Active Substance: MEPOLIZUMAB
     Indication: Asthma
     Dosage: FREQ: INJECT 100 MG UNDER THE SKIN EVERY 28 DAYS.
     Route: 058
     Dates: start: 20240820
  2. ALBUTEROL AER HFA [Concomitant]
  3. NITROGLYCERN SUB [Concomitant]
  4. SYMBICORT [Concomitant]
     Active Substance: BUDESONIDE\FORMOTEROL FUMARATE DIHYDRATE

REACTIONS (3)
  - Impaired quality of life [None]
  - Asthma [None]
  - Pulmonary thrombosis [None]
